FAERS Safety Report 20919577 (Version 1)
Quarter: 2022Q2

REPORT INFORMATION
  Report Type: Spontaneous
  Country: US (occurrence: US)
  Receive Date: 20220606
  Receipt Date: 20220606
  Transmission Date: 20220720
  Serious: No
  Sender: FDA-Public Use
  Company Number: US-drreddys-LIT/USA/22/0150469

PATIENT
  Age: 77 Year
  Sex: Female

DRUGS (27)
  1. PYRIDOXINE HYDROCHLORIDE [Suspect]
     Active Substance: PYRIDOXINE HYDROCHLORIDE
     Indication: Supplementation therapy
  2. VITAMIN A [Suspect]
     Active Substance: VITAMIN A
     Indication: Supplementation therapy
  3. VITAMIN C [Suspect]
     Active Substance: ASCORBIC ACID
     Indication: Supplementation therapy
  4. VITAMIN D NOS [Suspect]
     Active Substance: VITAMIN D NOS
     Indication: Supplementation therapy
  5. VITAMIN E [Suspect]
     Active Substance: .ALPHA.-TOCOPHEROL
     Indication: Supplementation therapy
  6. VITAMIN K [Suspect]
     Active Substance: PHYTONADIONE
     Indication: Supplementation therapy
  7. VITAMIN B1 [Suspect]
     Active Substance: THIAMINE HYDROCHLORIDE
     Indication: Supplementation therapy
  8. VITAMIN B2 [Suspect]
     Active Substance: RIBOFLAVIN
     Indication: Supplementation therapy
  9. VITAMIN B3 [Suspect]
     Active Substance: NIACIN
     Indication: Supplementation therapy
  10. BIOTIN [Suspect]
     Active Substance: BIOTIN
     Indication: Supplementation therapy
  11. VITAMIN B12 [Suspect]
     Active Substance: CYANOCOBALAMIN
     Indication: Supplementation therapy
  12. VITAMIN B COMPLEX NOS [Suspect]
     Active Substance: CYANOCOBALAMIN\PYRIDOXINE HYDROCHLORIDE\RIBOFLAVIN\SODIUM PANTOTHENATE\THIAMINE HYDROCHLORIDE\VITAMI
     Indication: Supplementation therapy
  13. FOLATE SODIUM [Suspect]
     Active Substance: FOLATE SODIUM
     Indication: Supplementation therapy
  14. ZINC [Suspect]
     Active Substance: ZINC
     Indication: Supplementation therapy
  15. COENZYME Q10 [Suspect]
     Active Substance: DIETARY SUPPLEMENT\UBIDECARENONE
     Indication: Supplementation therapy
  16. SELENIUM [Suspect]
     Active Substance: SELENIUM
     Indication: Supplementation therapy
  17. CHROMIUM [Suspect]
     Active Substance: CHROMIC CHLORIDE\CHROMIUM
     Indication: Supplementation therapy
  18. MENAQUINONE 6 [Suspect]
     Active Substance: MENAQUINONE 6
     Indication: Supplementation therapy
  19. ACETYL L-TYROSINE [Suspect]
     Active Substance: ACETYL L-TYROSINE
     Indication: Supplementation therapy
  20. ALPHA LIPOIC ACID [Suspect]
     Active Substance: .ALPHA.-LIPOIC ACID
     Indication: Supplementation therapy
  21. OMEGA-3 ACIDS [Suspect]
     Active Substance: OMEGA-3 FATTY ACIDS
     Indication: Supplementation therapy
  22. MAGNESIUM OXIDE [Suspect]
     Active Substance: MAGNESIUM OXIDE
     Indication: Supplementation therapy
  23. ASTAXANTHIN [Suspect]
     Active Substance: ASTAXANTHIN
     Indication: Product used for unknown indication
  24. HERBALS [Suspect]
     Active Substance: HERBALS
     Indication: Product used for unknown indication
  25. HERBALS\SPIRULINA [Suspect]
     Active Substance: HERBALS\SPIRULINA
     Indication: Product used for unknown indication
  26. DIETARY SUPPLEMENT [Suspect]
     Active Substance: DIETARY SUPPLEMENT
     Indication: Product used for unknown indication
  27. LEVOTHYROXINE SODIUM [Concomitant]
     Active Substance: LEVOTHYROXINE SODIUM
     Indication: Hypothyroidism

REACTIONS (1)
  - Diarrhoea [Recovered/Resolved]
